FAERS Safety Report 17130005 (Version 1)
Quarter: 2019Q4

REPORT INFORMATION
  Report Type: Spontaneous
  Country: US (occurrence: US)
  Receive Date: 20191115
  Receipt Date: 20191115
  Transmission Date: 20200122
  Serious: No
  Sender: FDA-Public Use
  Company Number: None

PATIENT
  Age: 71 Year
  Sex: Female
  Weight: 55.79 kg

DRUGS (9)
  1. VIT B 12 [Concomitant]
     Active Substance: CYANOCOBALAMIN
  2. CREON [Suspect]
     Active Substance: PANCRELIPASE AMYLASE\PANCRELIPASE LIPASE\PANCRELIPASE PROTEASE
     Indication: PRODUCT USED FOR UNKNOWN INDICATION
     Dosage: ?          QUANTITY:2 DF DOSAGE FORM;?
     Route: 048
     Dates: start: 20190824, end: 20190914
  3. GABA [Concomitant]
     Active Substance: HOMEOPATHICS
  4. MULTI-VITAMINS [Concomitant]
  5. VITAMIN K [Concomitant]
     Active Substance: PHYTONADIONE
  6. SUPER OMEGA WITH COQ10 [Concomitant]
  7. ESTRIOL/TESTOSTERONE/PROGESTERONE [Concomitant]
  8. VIT D [Concomitant]
     Active Substance: VITAMIN D NOS
  9. ARMODEFINIL [Concomitant]

REACTIONS (10)
  - Palpitations [None]
  - Flatulence [None]
  - Asthenia [None]
  - Constipation [None]
  - Decreased appetite [None]
  - Arthralgia [None]
  - Nausea [None]
  - Abdominal distension [None]
  - Throat irritation [None]
  - Abdominal pain upper [None]

NARRATIVE: CASE EVENT DATE: 20190824
